FAERS Safety Report 25681032 (Version 1)
Quarter: 2025Q3

REPORT INFORMATION
  Report Type: Spontaneous
  Country: US (occurrence: None)
  Receive Date: 20250814
  Receipt Date: 20250814
  Transmission Date: 20251020
  Serious: Yes (Hospitalization)
  Sender: FDA-CTU
  Company Number: None

PATIENT
  Age: 53 Year
  Sex: Female
  Weight: 62.6 kg

DRUGS (2)
  1. CARBOPLATIN [Suspect]
     Active Substance: CARBOPLATIN
  2. GEMCITABINE HYDROCHLORIDE [Suspect]
     Active Substance: GEMCITABINE HYDROCHLORIDE

REACTIONS (5)
  - Subarachnoid haemorrhage [None]
  - Upper gastrointestinal haemorrhage [None]
  - Tumour haemorrhage [None]
  - Subdural haematoma [None]
  - Thrombocytopenia [None]

NARRATIVE: CASE EVENT DATE: 20250124
